FAERS Safety Report 6043510-6 (Version None)
Quarter: 2009Q1

REPORT INFORMATION
  Report Type: 
  Country: None (occurrence: None)
  Receive Date: 20090114
  Receipt Date: 20090114
  Transmission Date: 20090719
  Serious: No
  Sender: FDA-Public Use
  Company Number: None

PATIENT
  Age: 2 Year
  Sex: Male
  Weight: 15.8759 kg

DRUGS (2)
  1. SINGULAIR [Suspect]
     Indication: EAR INFECTION
     Dosage: 1 DAILY PO
     Route: 048
  2. SINGULAIR [Suspect]
     Indication: INFECTION PROPHYLAXIS
     Dosage: 1 DAILY PO
     Route: 048

REACTIONS (5)
  - AGGRESSION [None]
  - CONVERSION DISORDER [None]
  - MOOD ALTERED [None]
  - NIGHTMARE [None]
  - OPPOSITIONAL DEFIANT DISORDER [None]
